FAERS Safety Report 13286770 (Version 1)
Quarter: 2017Q1

REPORT INFORMATION
  Report Type: Spontaneous
  Country: FR (occurrence: FR)
  Receive Date: 20170302
  Receipt Date: 20170302
  Transmission Date: 20170428
  Serious: Yes (Hospitalization)
  Sender: FDA-Public Use
  Company Number: FR-PFIZER INC-2017084977

PATIENT
  Age: 58 Year
  Sex: Female

DRUGS (2)
  1. CARBOPLATINE HOSPIRA [Suspect]
     Active Substance: CARBOPLATIN
     Indication: OVARIAN EPITHELIAL CANCER
     Dosage: 470 MG, CYCLIC
     Route: 041
     Dates: start: 20170217, end: 20170217
  2. POLARAMINE [Concomitant]
     Active Substance: DEXCHLORPHENIRAMINE MALEATE
     Dosage: UNK
     Dates: start: 20170217, end: 20170217

REACTIONS (9)
  - Pruritus [Recovered/Resolved]
  - Anaphylactic reaction [Recovered/Resolved]
  - Respiratory disorder [Recovered/Resolved]
  - Oropharyngeal discomfort [Recovered/Resolved]
  - Tachycardia [Recovered/Resolved]
  - Anaphylactoid reaction [Recovered/Resolved]
  - Oxygen saturation decreased [Recovered/Resolved]
  - Hypotension [Recovered/Resolved]
  - Erythema [Recovered/Resolved]

NARRATIVE: CASE EVENT DATE: 20170217
